FAERS Safety Report 9011941 (Version 1)
Quarter: 2013Q1

REPORT INFORMATION
  Report Type: Spontaneous
  Country: GB (occurrence: GB)
  Receive Date: 20130111
  Receipt Date: 20130111
  Transmission Date: 20140127
  Serious: Yes (Life-Threatening, Other)
  Sender: FDA-Public Use
  Company Number: GB-ROCHE-1176007

PATIENT
  Sex: Male
  Weight: 72 kg

DRUGS (13)
  1. ROACCUTANE [Suspect]
     Indication: ACNE
     Route: 048
     Dates: start: 19980315
  2. IRBESARTAN [Concomitant]
     Route: 065
     Dates: start: 201103
  3. METOPROLOL TARTRATE [Concomitant]
     Route: 065
     Dates: start: 201103
  4. AMLODIPINE [Concomitant]
     Route: 065
     Dates: start: 201103
  5. SODIUM BICARBONATE [Concomitant]
     Dosage: 2G X 84
     Route: 065
     Dates: start: 201103
  6. DOXAZOSIN MESILATE [Concomitant]
     Route: 065
     Dates: start: 201103
  7. ENALAPRIL MALEATE [Concomitant]
     Route: 065
     Dates: start: 201103
  8. FUROSEMIDE [Concomitant]
     Route: 065
     Dates: start: 201103
  9. SIMVASTATIN [Concomitant]
     Route: 065
     Dates: start: 201103
  10. ERYTHROPOIETIN [Concomitant]
     Route: 065
     Dates: start: 201103
  11. MYCOPHENOLATE MOFETIL [Concomitant]
     Route: 065
     Dates: start: 201103
  12. MYCOPHENOLATE MOFETIL [Concomitant]
     Route: 065
  13. MYCOPHENOLATE MOFETIL [Concomitant]
     Route: 065

REACTIONS (7)
  - Glomerulonephritis membranoproliferative [Not Recovered/Not Resolved]
  - Focal segmental glomerulosclerosis [Not Recovered/Not Resolved]
  - Renal failure chronic [Unknown]
  - Aortic valve incompetence [Unknown]
  - Left ventricular hypertrophy [Unknown]
  - Hyperkalaemia [Not Recovered/Not Resolved]
  - Immune system disorder [Unknown]
